FAERS Safety Report 4434763-6 (Version None)
Quarter: 2004Q3

REPORT INFORMATION
  Report Type: 
  Country: None (occurrence: None)
  Receive Date: 20040827
  Receipt Date: 20031022
  Transmission Date: 20050211
  Serious: Yes (Hospitalization)
  Sender: FDA-Public Use
  Company Number: 200313992FR

PATIENT
  Age: 77 Year
  Sex: Female

DRUGS (2)
  1. LASIX [Suspect]
     Route: 048
  2. ISORYTHM [Suspect]
     Route: 048

REACTIONS (7)
  - DRUG INTERACTION [None]
  - ELECTROCARDIOGRAM QT PROLONGED [None]
  - GASTROENTERITIS [None]
  - HYPOKALAEMIA [None]
  - RENAL FAILURE [None]
  - TACHYCARDIA [None]
  - TORSADE DE POINTES [None]
